FAERS Safety Report 4749209-8 (Version None)
Quarter: 2005Q3

REPORT INFORMATION
  Report Type: 
  Country: None (occurrence: None)
  Receive Date: 20050817
  Receipt Date: 20050812
  Transmission Date: 20060218
  Serious: Yes (Death, Hospitalization)
  Sender: FDA-Public Use
  Company Number: TCI2005A03581

PATIENT
  Age: 79 Year
  Sex: Female

DRUGS (4)
  1. TAKEPRON OD TABLETS (LANSOPRAZOLE) (TABLETS) [Suspect]
     Indication: GASTRITIS EROSIVE
     Dosage: 60 MG (60 MG, 1 D), PER ORAL
     Route: 048
     Dates: start: 20040608, end: 20040614
  2. TAKEPRON OD TABLETS (LANSOPRAZOLE) (TABLETS) [Suspect]
     Indication: HELICOBACTER INFECTION
     Dosage: 60 MG (60 MG, 1 D), PER ORAL
     Route: 048
     Dates: start: 20040608, end: 20040614
  3. CLARITHROMYCIN [Suspect]
     Indication: HELICOBACTER INFECTION
     Dosage: 400 MG (400 MG, 1 D), PER ORAL
     Route: 048
     Dates: start: 20040608, end: 20040614
  4. SAWASILLIN (AMOXICILLIN TRIHYDRATE (TABLETS) [Suspect]
     Dosage: 1500 MG (1500 MG, 1 D) , PER ORAL
     Route: 048
     Dates: start: 20040608, end: 20040614

REACTIONS (12)
  - ACIDOSIS [None]
  - BLOOD PRESSURE DECREASED [None]
  - DEPRESSED LEVEL OF CONSCIOUSNESS [None]
  - EXCHANGE BLOOD TRANSFUSION [None]
  - HAEMOLYTIC ANAEMIA [None]
  - INFECTION IN AN IMMUNOCOMPROMISED HOST [None]
  - PNEUMONIA [None]
  - PYREXIA [None]
  - RESPIRATORY DISORDER [None]
  - SEPSIS [None]
  - THERAPEUTIC PRODUCT INEFFECTIVE [None]
  - THROMBOTIC THROMBOCYTOPENIC PURPURA [None]
